FAERS Safety Report 10469209 (Version 1)
Quarter: 2014Q3

REPORT INFORMATION
  Report Type: Spontaneous
  Country: US (occurrence: None)
  Receive Date: 20140922
  Receipt Date: 20140922
  Transmission Date: 20150326
  Serious: Yes (Other)
  Sender: FDA-Public Use
  Company Number: None

PATIENT
  Age: 24 Year
  Sex: Male
  Weight: 95.26 kg

DRUGS (1)
  1. CYTOMEL [Suspect]
     Active Substance: LIOTHYRONINE SODIUM
     Indication: HYPOTHYROIDISM
     Dosage: 20 PILLS PER DAY ONCE DAILY TAKEN BY MOUTH
     Route: 048
     Dates: start: 20130923, end: 20140920

REACTIONS (3)
  - Product substitution issue [None]
  - Dysgeusia [None]
  - Product quality issue [None]

NARRATIVE: CASE EVENT DATE: 20140310
